FAERS Safety Report 7065016-8 (Version None)
Quarter: 2010Q4

REPORT INFORMATION
  Report Type: 
  Country: None (occurrence: None)
  Receive Date: 20101022
  Receipt Date: 20101022
  Transmission Date: 20110411
  Serious: Yes (Other)
  Sender: FDA-Public Use
  Company Number: None

PATIENT
  Age: 49 Year
  Sex: Male
  Weight: 95.2554 kg

DRUGS (1)
  1. VANLAFAXINE XR 150 MG TEVA [Suspect]
     Indication: DEPRESSION
     Dosage: 150 MG 1/DAY PO
     Route: 048
     Dates: start: 20100730, end: 20100915

REACTIONS (6)
  - BLOOD PRESSURE INCREASED [None]
  - EYE HAEMORRHAGE [None]
  - FATIGUE [None]
  - HEADACHE [None]
  - IRRITABLE BOWEL SYNDROME [None]
  - PRODUCT SUBSTITUTION ISSUE [None]
